FAERS Safety Report 10245449 (Version 1)
Quarter: 2014Q2

REPORT INFORMATION
  Report Type: Spontaneous
  Country: JP (occurrence: JP)
  Receive Date: 20140618
  Receipt Date: 20140618
  Transmission Date: 20141212
  Serious: Yes (Other)
  Sender: FDA-Public Use
  Company Number: JP-MERCK-1406JPN008074

PATIENT
  Age: 86 Year
  Sex: Female

DRUGS (6)
  1. REFLEX [Suspect]
     Indication: DEPRESSION
     Dosage: UNK
     Route: 048
  2. NIFEDIPINE [Concomitant]
     Route: 048
  3. LEVOGLUTAMIDE (+) SODIUM GUALENATE [Concomitant]
     Route: 048
  4. SENNOSIDES [Concomitant]
     Route: 048
  5. POLAPREZINC [Concomitant]
     Route: 048
  6. HYDROCHLOROTHIAZIDE (+) VALSARTAN [Concomitant]
     Route: 048

REACTIONS (1)
  - Glycosylated haemoglobin increased [Not Recovered/Not Resolved]
